FAERS Safety Report 8465193-8 (Version None)
Quarter: 2012Q2

REPORT INFORMATION
  Report Type: 
  Country: None (occurrence: None)
  Receive Date: 20120626
  Receipt Date: 20120619
  Transmission Date: 20120825
  Serious: Yes (Other)
  Sender: FDA-Public Use
  Company Number: PHHY2012EC053631

PATIENT
  Sex: Female

DRUGS (2)
  1. DIOVAN HCT [Suspect]
     Indication: HYPERTENSION
     Dosage: 1 DF (80 MG VALS/ 12.5 MG AMLO), DAILY
     Route: 048
     Dates: start: 20040101, end: 20120615
  2. AMLODIPINE [Concomitant]
     Dosage: 10 MG, ONLY

REACTIONS (6)
  - GASTROINTESTINAL DISORDER [None]
  - GENITAL HAEMORRHAGE [None]
  - LOCAL SWELLING [None]
  - HORMONE LEVEL ABNORMAL [None]
  - RENAL IMPAIRMENT [None]
  - BLOOD PRESSURE INCREASED [None]
